FAERS Safety Report 16188929 (Version 1)
Quarter: 2019Q2

REPORT INFORMATION
  Report Type: Spontaneous
  Country: US (occurrence: US)
  Receive Date: 20190412
  Receipt Date: 20190412
  Transmission Date: 20190711
  Serious: No
  Sender: FDA-Public Use
  Company Number: US-TEVA-2018-US-934755

PATIENT
  Age: 30 Year
  Sex: Female

DRUGS (2)
  1. CABERGOLINE. [Suspect]
     Active Substance: CABERGOLINE
     Indication: PROLACTIN-PRODUCING PITUITARY TUMOUR
     Dosage: DOSE WAS INCREASED UP TO 3.5MG TWICE A WEEK
     Route: 065
  2. CABERGOLINE. [Suspect]
     Active Substance: CABERGOLINE
     Indication: PROLACTIN-PRODUCING PITUITARY TUMOUR
     Dosage: INITIAL DOSAGE NOT STATED; AND LATER, DOSE WAS INCREASED UP TO 3.5MG TWICE A WEEK
     Route: 065

REACTIONS (3)
  - Memory impairment [Unknown]
  - Pain in extremity [Unknown]
  - Disturbance in attention [Unknown]
